FAERS Safety Report 23305564 (Version 2)
Quarter: 2024Q1

REPORT INFORMATION
  Report Type: Spontaneous
  Country: US (occurrence: US)
  Receive Date: 20231218
  Receipt Date: 20240327
  Transmission Date: 20240410
  Serious: No
  Sender: FDA-Public Use
  Company Number: US-BRISTOL-MYERS SQUIBB COMPANY-2023-181479

PATIENT
  Age: 63 Year
  Sex: Male

DRUGS (1)
  1. THALOMID [Suspect]
     Active Substance: THALIDOMIDE
     Indication: Idiopathic pulmonary fibrosis
     Route: 048

REACTIONS (5)
  - Paraesthesia [Unknown]
  - Off label use [Unknown]
  - Muscle spasms [Recovering/Resolving]
  - Rash pruritic [Recovering/Resolving]
  - Rash macular [Recovering/Resolving]

NARRATIVE: CASE EVENT DATE: 20231115
